FAERS Safety Report 6266559-7 (Version None)
Quarter: 2009Q3

REPORT INFORMATION
  Report Type: 
  Country: None (occurrence: None)
  Receive Date: 20090710
  Receipt Date: 20090702
  Transmission Date: 20100115
  Serious: Yes (Hospitalization)
  Sender: FDA-Public Use
  Company Number: CHPA2009US14576

PATIENT
  Age: 75 Year
  Sex: Male
  Weight: 74.8 kg

DRUGS (1)
  1. NICOTINE [Suspect]
     Indication: EX-TOBACCO USER
     Dosage: 21 MG, QD, TRANSDERMAL
     Route: 062
     Dates: start: 20090601

REACTIONS (2)
  - CONDITION AGGRAVATED [None]
  - DYSPNOEA [None]
